FAERS Safety Report 7471503-0 (Version None)
Quarter: 2011Q2

REPORT INFORMATION
  Report Type: 
  Country: None (occurrence: None)
  Receive Date: 20110511
  Receipt Date: 20110503
  Transmission Date: 20111010
  Serious: No
  Sender: FDA-Public Use
  Company Number: US-BIOGENIDEC-2011BI016714

PATIENT
  Age: 31 Year
  Sex: Male

DRUGS (2)
  1. HIGH DOSE STEROIDS (NOS) [Concomitant]
     Indication: MULTIPLE SCLEROSIS
  2. AVONEX [Suspect]
     Indication: MULTIPLE SCLEROSIS
     Route: 030
     Dates: start: 20110416

REACTIONS (4)
  - DYSKINESIA [None]
  - HYPOAESTHESIA [None]
  - PARAESTHESIA [None]
  - MUSCLE TWITCHING [None]
